FAERS Safety Report 9032267 (Version 1)
Quarter: 2013Q1

REPORT INFORMATION
  Report Type: Spontaneous
  Country: US (occurrence: US)
  Receive Date: 20130122
  Receipt Date: 20130122
  Transmission Date: 20140127
  Serious: Yes (Death, Hospitalization)
  Sender: FDA-Public Use
  Company Number: US-JNJFOC-20130106506

PATIENT
  Age: 47 Year
  Sex: Female

DRUGS (5)
  1. ACETAMINOPHEN AND DIPHENHYDRAMINE HCL [Suspect]
     Indication: SUICIDE ATTEMPT
     Route: 065
  2. UNKNOWN MEDICATION [Suspect]
     Indication: SUICIDE ATTEMPT
     Route: 065
  3. HYDROXYZINE [Suspect]
     Indication: SUICIDE ATTEMPT
     Route: 065
  4. DIAZEPAM [Suspect]
     Indication: SUICIDE ATTEMPT
     Route: 065
  5. CLONAZEPAM [Suspect]
     Indication: SUICIDE ATTEMPT
     Route: 065

REACTIONS (5)
  - Toxicity to various agents [Fatal]
  - Incorrect route of drug administration [Fatal]
  - Completed suicide [None]
  - Cardiac arrest [None]
  - Respiratory arrest [None]
